FAERS Safety Report 10494246 (Version 1)
Quarter: 2014Q4

REPORT INFORMATION
  Report Type: Spontaneous
  Country: US (occurrence: None)
  Receive Date: 20141002
  Receipt Date: 20141002
  Transmission Date: 20150528
  Serious: Yes (Disabling)
  Sender: FDA-Public Use
  Company Number: None

PATIENT
  Age: 71 Year
  Sex: Male
  Weight: 108.86 kg

DRUGS (2)
  1. ELIQUIS [Suspect]
     Active Substance: APIXABAN
     Indication: CEREBROVASCULAR ACCIDENT PROPHYLAXIS
     Dosage: 1 PILL, TWICE DAILY, TAKEN BY MOUTH
     Route: 048
     Dates: start: 20140926, end: 20140929
  2. ELIQUIS [Suspect]
     Active Substance: APIXABAN
     Indication: PULMONARY ARTERIAL HYPERTENSION
     Dosage: 1 PILL, TWICE DAILY, TAKEN BY MOUTH
     Route: 048
     Dates: start: 20140926, end: 20140929

REACTIONS (2)
  - Blood urine present [None]
  - Diarrhoea [None]

NARRATIVE: CASE EVENT DATE: 20140929
